FAERS Safety Report 8213746-4 (Version None)
Quarter: 2012Q1

REPORT INFORMATION
  Report Type: 
  Country: None (occurrence: None)
  Receive Date: 20120316
  Receipt Date: 20120307
  Transmission Date: 20120608
  Serious: Yes (Life-Threatening, Hospitalization, Other)
  Sender: FDA-Public Use
  Company Number: RO-BRISTOL-MYERS SQUIBB COMPANY-16106742

PATIENT
  Age: 74 Year
  Sex: Male
  Weight: 68 kg

DRUGS (9)
  1. ROSUVASTATIN [Concomitant]
  2. TRAMADOL HCL [Concomitant]
  3. CARVEDILOL [Concomitant]
     Dates: start: 20060101
  4. TRIMETAZIDINE [Concomitant]
     Dates: start: 20060101
  5. CISPLATIN [Suspect]
     Indication: NON-SMALL CELL LUNG CANCER
     Dosage: INTERRUPTED ON 4JAN2011(29D)
     Route: 042
     Dates: start: 20101207
  6. PLAVIX [Concomitant]
  7. NECITUMUMAB [Suspect]
     Indication: NON-SMALL CELL LUNG CANCER
     Dosage: INTERRUPTED ON 4JAN2011(29D)
     Route: 042
     Dates: start: 20101207
  8. PEMETREXED DISODIUM [Suspect]
     Indication: NON-SMALL CELL LUNG CANCER
     Dosage: INTERRUPTED ON 4JAN2011(29D)
     Route: 042
     Dates: start: 20101207
  9. GLYBURIDE [Concomitant]

REACTIONS (4)
  - LEUKOPENIA [None]
  - THROMBOCYTOPENIA [None]
  - MEDICATION ERROR [None]
  - NEUTROPENIA [None]
